FAERS Safety Report 4679163-9 (Version None)
Quarter: 2005Q2

REPORT INFORMATION
  Report Type: 
  Country: None (occurrence: None)
  Receive Date: 20050526
  Receipt Date: 20050316
  Transmission Date: 20051028
  Serious: Yes (Disabling)
  Sender: FDA-Public Use
  Company Number: WAES 0503USA02769

PATIENT
  Age: 58 Year
  Sex: Male

DRUGS (8)
  1. VYTORIN [Suspect]
     Indication: BLOOD CHOLESTEROL INCREASED
     Dosage: 10-40 MG/DAILY/PO
     Route: 048
     Dates: start: 20041201, end: 20050302
  2. COREG [Concomitant]
  3. HYTRIN [Concomitant]
  4. NIASPAN [Concomitant]
  5. PREVACID [Concomitant]
  6. TRICOR [Concomitant]
  7. ZANTAC [Concomitant]
  8. ZOLOFT [Concomitant]

REACTIONS (1)
  - MYOPATHY [None]
